FAERS Safety Report 6429591-6 (Version None)
Quarter: 2009Q4

REPORT INFORMATION
  Report Type: 
  Country: None (occurrence: None)
  Receive Date: 20091103
  Receipt Date: 20091026
  Transmission Date: 20100525
  Serious: Yes (Death)
  Sender: FDA-Public Use
  Company Number: 8052729

PATIENT
  Age: 25 Year
  Sex: Male

DRUGS (3)
  1. CIMZIA [Suspect]
     Indication: CROHN'S DISEASE
     Dosage: 400 MG 1/2W SC; 400 MG ONCE SC; 400 MG/M SC
     Route: 058
     Dates: start: 20080814, end: 20080826
  2. CIMZIA [Suspect]
     Indication: CROHN'S DISEASE
     Dosage: 400 MG 1/2W SC; 400 MG ONCE SC; 400 MG/M SC
     Route: 058
     Dates: start: 20081201, end: 20081201
  3. CIMZIA [Suspect]
     Indication: CROHN'S DISEASE
     Dosage: 400 MG 1/2W SC; 400 MG ONCE SC; 400 MG/M SC
     Route: 058
     Dates: start: 20090306, end: 20090901

REACTIONS (2)
  - CARDIAC ARREST [None]
  - PULMONARY EMBOLISM [None]
